FAERS Safety Report 8030378-1 (Version None)
Quarter: 2012Q1

REPORT INFORMATION
  Report Type: 
  Country: None (occurrence: None)
  Receive Date: 20120109
  Receipt Date: 20120109
  Transmission Date: 20120608
  Serious: Yes (Hospitalization)
  Sender: FDA-Public Use
  Company Number: None

PATIENT
  Sex: Male
  Weight: 68 kg

DRUGS (2)
  1. XARELTO [Suspect]
     Indication: VENTRICULAR TACHYCARDIA
     Dosage: 10 MG
     Route: 048
     Dates: start: 20111228, end: 20120103
  2. XARELTO [Suspect]
     Indication: PROPHYLAXIS
     Dosage: 10 MG
     Route: 048
     Dates: start: 20111228, end: 20120103

REACTIONS (3)
  - CHEST PAIN [None]
  - ADRENAL HAEMORRHAGE [None]
  - ABDOMINAL PAIN [None]
